APPROVED DRUG PRODUCT: EFAVIRENZ
Active Ingredient: EFAVIRENZ
Strength: 600MG
Dosage Form/Route: TABLET;ORAL
Application: A078509 | Product #001
Applicant: STRIDES PHARMA GLOBAL PTE LTD
Approved: Jun 16, 2021 | RLD: No | RS: No | Type: DISCN